FAERS Safety Report 5337189-6 (Version None)
Quarter: 2007Q2

REPORT INFORMATION
  Report Type: 
  Country: None (occurrence: None)
  Receive Date: 20070529
  Receipt Date: 20070518
  Transmission Date: 20071010
  Serious: Yes (Other)
  Sender: FDA-Public Use
  Company Number: GB-PFIZER INC-2007041372

PATIENT
  Age: 6 Year
  Sex: Male

DRUGS (1)
  1. ISTIN [Suspect]
     Route: 064

REACTIONS (4)
  - CLUMSINESS [None]
  - DRUG EXPOSURE DURING PREGNANCY [None]
  - DYSPRAXIA [None]
  - MOTOR DYSFUNCTION [None]
